FAERS Safety Report 4385055-5 (Version None)
Quarter: 2004Q2

REPORT INFORMATION
  Report Type: 
  Country: None (occurrence: None)
  Receive Date: 20040625
  Receipt Date: 20040614
  Transmission Date: 20050107
  Serious: Yes (Other)
  Sender: FDA-Public Use
  Company Number: SE-GLAXOSMITHKLINE-B0336421A

PATIENT
  Age: 52 Year
  Sex: Female

DRUGS (4)
  1. SEROXAT [Suspect]
     Indication: ANXIETY
     Dosage: 10MG PER DAY
     Route: 048
     Dates: start: 20030301, end: 20030326
  2. BUSPAR [Suspect]
     Indication: ANXIETY
     Dosage: 40MG PER DAY
     Route: 048
     Dates: start: 19900101, end: 20030421
  3. PAPAVERINE [Concomitant]
  4. UBIDECARENONE [Concomitant]

REACTIONS (13)
  - ABDOMINAL PAIN [None]
  - C-REACTIVE PROTEIN INCREASED [None]
  - CHILLS [None]
  - DRUG INTERACTION [None]
  - ECCHYMOSIS [None]
  - ERYTHEMA [None]
  - ERYTHEMA NODOSUM [None]
  - HYPERHIDROSIS [None]
  - PYREXIA [None]
  - RASH [None]
  - SEROTONIN SYNDROME [None]
  - TACHYCARDIA [None]
  - TREMOR [None]
